FAERS Safety Report 10067242 (Version 1)
Quarter: 2014Q2

REPORT INFORMATION
  Report Type: Not Available
  Country: US (occurrence: US)
  Receive Date: 20140409
  Receipt Date: 20140409
  Transmission Date: 20141212
  Serious: Yes (Death)
  Sender: FDA-Public Use
  Company Number: US-LUPIN PHARMACEUTICALS INC.-E2B_00001902

PATIENT
  Age: 54 Year
  Sex: Male
  Weight: 97.61 kg

DRUGS (1)
  1. LOSARTAN POTASSIUM AND HYDROCHLOROTHIAZIDE TABLETS USP 100MG/25MG [Suspect]
     Indication: HYPERTENSION
     Dates: start: 201103

REACTIONS (2)
  - Myocardial infarction [Fatal]
  - Treatment noncompliance [Unknown]
